FAERS Safety Report 8972383 (Version 2)
Quarter: 2013Q1

REPORT INFORMATION
  Report Type: Report from Study
  Country: HK (occurrence: HK)
  Receive Date: 20121219
  Receipt Date: 20130131
  Transmission Date: 20140127
  Serious: Yes (Hospitalization)
  Sender: FDA-Public Use
  Company Number: HK-PFIZER INC-2012000051

PATIENT
  Age: 40 Year
  Sex: Male
  Weight: 81 kg

DRUGS (3)
  1. TOFACITINIB CITRATE [Suspect]
     Indication: PSORIASIS
     Dosage: 10 MG, 2X/DAY
     Route: 048
     Dates: start: 20110615, end: 20111230
  2. TOFACITINIB CITRATE [Suspect]
     Dosage: 10 MG, 2X/DAY
     Route: 048
     Dates: start: 20120109, end: 20120202
  3. TOFACITINIB CITRATE [Suspect]
     Dosage: 5 MG, 2X/DAY
     Route: 048
     Dates: start: 20120203

REACTIONS (1)
  - Blood creatine phosphokinase increased [Recovered/Resolved]
